FAERS Safety Report 13302734 (Version 9)
Quarter: 2018Q2

REPORT INFORMATION
  Report Type: Report from Study
  Country: JP (occurrence: JP)
  Receive Date: 20170307
  Receipt Date: 20180517
  Transmission Date: 20180711
  Serious: Yes (Death, Hospitalization, Other)
  Sender: FDA-Public Use
  Company Number: JP-BRISTOL-MYERS SQUIBB COMPANY-BMS-2017-019216

PATIENT
  Age: 77 Year
  Sex: Female

DRUGS (2)
  1. NIVOLUMAB [Suspect]
     Active Substance: NIVOLUMAB
     Indication: MALIGNANT MELANOMA
     Dosage: 198 MG, UNK
     Route: 041
     Dates: start: 20161018, end: 20161018
  2. NIVOLUMAB [Suspect]
     Active Substance: NIVOLUMAB
     Indication: PRODUCT USED FOR UNKNOWN INDICATION
     Dosage: 198 MG, Q2MO
     Route: 041
     Dates: start: 20170119, end: 20170119

REACTIONS (8)
  - Catheter site infection [Fatal]
  - Adrenocorticotropic hormone deficiency [Recovered/Resolved with Sequelae]
  - Septic shock [Fatal]
  - Pyrexia [Recovering/Resolving]
  - Delirium [Recovered/Resolved with Sequelae]
  - Hypokalaemia [Not Recovered/Not Resolved]
  - Eczema [Recovered/Resolved]
  - Underdose [Unknown]

NARRATIVE: CASE EVENT DATE: 20170105
